FAERS Safety Report 7439787-2 (Version None)
Quarter: 2011Q2

REPORT INFORMATION
  Report Type: 
  Country: None (occurrence: None)
  Receive Date: 20110427
  Receipt Date: 20110419
  Transmission Date: 20111010
  Serious: Yes (Other)
  Sender: FDA-Public Use
  Company Number: US-ROXANE LABORATORIES, INC.-2011-RO-00541RO

PATIENT
  Age: 49 Year
  Sex: Male

DRUGS (3)
  1. PIPERACILLIN AND TAZOBACTAM [Suspect]
  2. HYDROMORPHONE [Suspect]
     Indication: PAIN
  3. HEPARIN [Suspect]
     Indication: THROMBOSIS PROPHYLAXIS

REACTIONS (2)
  - SINUS ARREST [None]
  - SINUS BRADYCARDIA [None]
